FAERS Safety Report 17360831 (Version 1)
Quarter: 2020Q1

REPORT INFORMATION
  Report Type: Spontaneous
  Country: US (occurrence: US)
  Receive Date: 20200203
  Receipt Date: 20200203
  Transmission Date: 20200409
  Serious: No
  Sender: FDA-Public Use
  Company Number: US-BAYER-2020-018864

PATIENT

DRUGS (2)
  1. LOTRIMIN ULTRA [Suspect]
     Active Substance: BUTENAFINE HYDROCHLORIDE
     Indication: PRURITUS
  2. LOTRIMIN ULTRA [Suspect]
     Active Substance: BUTENAFINE HYDROCHLORIDE
     Indication: SKIN IRRITATION

REACTIONS (4)
  - Pruritus [Unknown]
  - Therapeutic product effect incomplete [Unknown]
  - Product physical issue [Unknown]
  - Therapeutic product effect delayed [Unknown]
